FAERS Safety Report 10066386 (Version 1)
Quarter: 2014Q2

REPORT INFORMATION
  Report Type: Spontaneous
  Country: US (occurrence: US)
  Receive Date: 20140408
  Receipt Date: 20140408
  Transmission Date: 20141212
  Serious: No
  Sender: FDA-Public Use
  Company Number: US-PFIZER INC-2014096883

PATIENT
  Age: 73 Year
  Sex: Female
  Weight: 72.56 kg

DRUGS (3)
  1. CHANTIX [Suspect]
     Indication: SMOKING CESSATION THERAPY
     Dosage: UNK
     Dates: end: 2014
  2. ALBUTEROL [Concomitant]
     Indication: EMPHYSEMA
     Dosage: UNK, (THREE TO FOUR TIMES A DAY)
  3. ADVAIR [Concomitant]
     Indication: EMPHYSEMA
     Dosage: UNK, 2X/DAY

REACTIONS (1)
  - Rash [Not Recovered/Not Resolved]
